FAERS Safety Report 6928444-4 (Version None)
Quarter: 2010Q3

REPORT INFORMATION
  Report Type: 
  Country: None (occurrence: None)
  Receive Date: 20100817
  Receipt Date: 20100808
  Transmission Date: 20110219
  Serious: Yes (Hospitalization)
  Sender: FDA-Public Use
  Company Number: IN-BAXTER-2010BH019330

PATIENT
  Age: 70 Year
  Sex: Male

DRUGS (1)
  1. DIANEAL [Suspect]
     Indication: PERITONEAL DIALYSIS
     Route: 033
     Dates: start: 20100710, end: 20100803

REACTIONS (2)
  - FUNGAL PERITONITIS [None]
  - PERITONEAL DIALYSIS COMPLICATION [None]
